FAERS Safety Report 9877906 (Version 4)
Quarter: 2014Q3

REPORT INFORMATION
  Report Type: Spontaneous
  Country: US (occurrence: US)
  Receive Date: 20140206
  Receipt Date: 20140801
  Transmission Date: 20150326
  Serious: Yes (Hospitalization)
  Sender: FDA-Public Use
  Company Number: US-BAYER-2014-017793

PATIENT
  Age: 36 Year
  Sex: Female
  Weight: 72.56 kg

DRUGS (7)
  1. FLEXERIL [Concomitant]
     Active Substance: CYCLOBENZAPRINE HYDROCHLORIDE
  2. MIRENA [Suspect]
     Active Substance: LEVONORGESTREL
     Indication: CONTRACEPTION
     Dosage: 20 MCG/24HR, CONT
     Route: 015
     Dates: start: 20080408, end: 20131015
  3. COMPAZINE [Concomitant]
     Active Substance: PROCHLORPERAZINE MALEATE
  4. MAGNESIUM CITRATE [MAGNESIUM CITRATE] [Concomitant]
  5. MILK OF MAGNESIA [Concomitant]
     Active Substance: MAGNESIUM HYDROXIDE
  6. NAPROXEN. [Concomitant]
     Active Substance: NAPROXEN
  7. ZOFRAN [Concomitant]
     Active Substance: ONDANSETRON HYDROCHLORIDE

REACTIONS (10)
  - Uterine perforation [None]
  - Gastric disorder [None]
  - Pain in extremity [None]
  - Injury [None]
  - Pain [None]
  - Depression [None]
  - Stress [None]
  - Back pain [None]
  - Emotional distress [None]
  - Device issue [None]

NARRATIVE: CASE EVENT DATE: 2013
